FAERS Safety Report 5212596-0 (Version None)
Quarter: 2006Q4

REPORT INFORMATION
  Report Type: 
  Country: None (occurrence: None)
  Receive Date: 20061102
  Receipt Date: 20051004
  Transmission Date: 20070319
  Serious: Yes (Other)
  Sender: FDA-Public Use
  Company Number: 21036

PATIENT
  Age: 56 Year
  Sex: Female
  Weight: 81.6475 kg

DRUGS (10)
  1. METHOTREXATE [Suspect]
     Indication: SYSTEMIC LUPUS ERYTHEMATOSUS
     Dosage: 0.3ML, ONCE WEEKLY, IM
     Route: 030
     Dates: start: 20050801
  2. LISINOPRIL AND HYDROCHLOROTHIAZIDE [Concomitant]
  3. PLAQUENIL [Concomitant]
  4. MINOCYCLINE HCL [Concomitant]
  5. IRON TABLETS [Concomitant]
  6. SINGULAIR [Concomitant]
  7. BENADRYL [Concomitant]
  8. PREDNISONE [Concomitant]
  9. TYLENOL (CAPLET) [Concomitant]
  10. ALLEGRA [Concomitant]

REACTIONS (2)
  - NAUSEA [None]
  - PAIN [None]
